FAERS Safety Report 10804164 (Version 1)
Quarter: 2015Q1

REPORT INFORMATION
  Report Type: Report from Study
  Country: US (occurrence: US)
  Receive Date: 20150217
  Receipt Date: 20150217
  Transmission Date: 20150721
  Serious: No
  Sender: FDA-Public Use
  Company Number: US-ABBVIE-14K-163-1269710-00

PATIENT
  Age: 45 Year
  Sex: Male

DRUGS (5)
  1. HUMIRA [Suspect]
     Active Substance: ADALIMUMAB
     Dates: start: 20140802
  2. HUMIRA [Suspect]
     Active Substance: ADALIMUMAB
     Indication: CROHN^S DISEASE
     Dates: start: 2013, end: 2014
  3. ZOFRAN [Concomitant]
     Active Substance: ONDANSETRON HYDROCHLORIDE
     Indication: CROHN^S DISEASE
  4. TYLENOL [Concomitant]
     Active Substance: ACETAMINOPHEN
     Indication: PRODUCT USED FOR UNKNOWN INDICATION
  5. ZOFRAN [Concomitant]
     Active Substance: ONDANSETRON HYDROCHLORIDE
     Indication: NAUSEA
     Dosage: HAD NOT TAKEN FOR AWHILE

REACTIONS (6)
  - Injection site swelling [Not Recovered/Not Resolved]
  - Crohn^s disease [Unknown]
  - Fatigue [Unknown]
  - Drug effect decreased [Unknown]
  - Injection site pain [Unknown]
  - Spinal pain [Unknown]

NARRATIVE: CASE EVENT DATE: 2013
